FAERS Safety Report 9397328 (Version 2)
Quarter: 2013Q3

REPORT INFORMATION
  Report Type: Spontaneous
  Country: FR (occurrence: FR)
  Receive Date: 20130712
  Receipt Date: 20130821
  Transmission Date: 20140515
  Serious: Yes (Hospitalization, Other)
  Sender: FDA-Public Use
  Company Number: FR-ASTRAZENECA-2013SE50616

PATIENT
  Sex: Female

DRUGS (7)
  1. INEXIUM [Suspect]
     Route: 048
     Dates: start: 201303, end: 20130529
  2. CEFTRIAXONE BASE [Suspect]
     Dates: start: 20130302, end: 20130416
  3. TEICOPLANIN [Suspect]
     Dates: start: 20130302, end: 20130416
  4. FUROSEMID [Concomitant]
  5. INSULIN [Concomitant]
  6. RAMIPRIL [Concomitant]
  7. KAYEXALATE [Concomitant]

REACTIONS (5)
  - Acute generalised exanthematous pustulosis [Unknown]
  - Drug reaction with eosinophilia and systemic symptoms [Not Recovered/Not Resolved]
  - Herpes simplex pneumonia [Unknown]
  - Hepatocellular injury [Unknown]
  - Cholestasis [Unknown]
